FAERS Safety Report 25530885 (Version 2)
Quarter: 2025Q3

REPORT INFORMATION
  Report Type: Spontaneous
  Country: AU (occurrence: AU)
  Receive Date: 20250708
  Receipt Date: 20250715
  Transmission Date: 20251021
  Serious: Yes (Hospitalization)
  Sender: MYLAN
  Company Number: AU-MYLANLABS-2024M1084914

PATIENT
  Age: 44 Year
  Sex: Male

DRUGS (52)
  1. CLOZARIL [Suspect]
     Active Substance: CLOZAPINE
     Indication: Schizophrenia
     Route: 048
  2. CLOZARIL [Suspect]
     Active Substance: CLOZAPINE
  3. CLOZARIL [Suspect]
     Active Substance: CLOZAPINE
  4. CLOZARIL [Suspect]
     Active Substance: CLOZAPINE
     Route: 048
  5. CLOZARIL [Suspect]
     Active Substance: CLOZAPINE
     Route: 048
  6. CLOZARIL [Suspect]
     Active Substance: CLOZAPINE
  7. CLOZARIL [Suspect]
     Active Substance: CLOZAPINE
  8. CLOZARIL [Suspect]
     Active Substance: CLOZAPINE
     Route: 048
  9. CLOZARIL [Suspect]
     Active Substance: CLOZAPINE
     Route: 048
  10. CLOZARIL [Suspect]
     Active Substance: CLOZAPINE
  11. CLOZARIL [Suspect]
     Active Substance: CLOZAPINE
  12. CLOZARIL [Suspect]
     Active Substance: CLOZAPINE
     Route: 048
  13. CLOZARIL [Suspect]
     Active Substance: CLOZAPINE
     Route: 048
  14. CLOZARIL [Suspect]
     Active Substance: CLOZAPINE
  15. CLOZARIL [Suspect]
     Active Substance: CLOZAPINE
  16. CLOZARIL [Suspect]
     Active Substance: CLOZAPINE
     Route: 048
  17. ARIPIPRAZOLE [Concomitant]
     Active Substance: ARIPIPRAZOLE
     Dosage: 30 MILLIGRAM, AM (IN MORNING)
  18. ARIPIPRAZOLE [Concomitant]
     Active Substance: ARIPIPRAZOLE
     Dosage: 30 MILLIGRAM, AM (IN MORNING)
     Route: 065
  19. ARIPIPRAZOLE [Concomitant]
     Active Substance: ARIPIPRAZOLE
     Dosage: 30 MILLIGRAM, AM (IN MORNING)
     Route: 065
  20. ARIPIPRAZOLE [Concomitant]
     Active Substance: ARIPIPRAZOLE
     Dosage: 30 MILLIGRAM, AM (IN MORNING)
  21. ZUCLOPENTHIXOL [Concomitant]
     Active Substance: ZUCLOPENTHIXOL
     Dosage: 300 MILLIGRAM, 4XW
     Dates: end: 20250701
  22. ZUCLOPENTHIXOL [Concomitant]
     Active Substance: ZUCLOPENTHIXOL
     Dosage: 300 MILLIGRAM, 4XW
     Route: 065
     Dates: end: 20250701
  23. ZUCLOPENTHIXOL [Concomitant]
     Active Substance: ZUCLOPENTHIXOL
     Dosage: 300 MILLIGRAM, 4XW
     Route: 065
     Dates: end: 20250701
  24. ZUCLOPENTHIXOL [Concomitant]
     Active Substance: ZUCLOPENTHIXOL
     Dosage: 300 MILLIGRAM, 4XW
     Dates: end: 20250701
  25. QUETIAPINE [Concomitant]
     Active Substance: QUETIAPINE
     Dosage: 50 MILLIGRAM, PM (QUETIAPINE IR; AT NIGHT)
  26. QUETIAPINE [Concomitant]
     Active Substance: QUETIAPINE
     Dosage: 50 MILLIGRAM, PM (QUETIAPINE IR; AT NIGHT)
     Route: 065
  27. QUETIAPINE [Concomitant]
     Active Substance: QUETIAPINE
     Dosage: 50 MILLIGRAM, PM (QUETIAPINE IR; AT NIGHT)
     Route: 065
  28. QUETIAPINE [Concomitant]
     Active Substance: QUETIAPINE
     Dosage: 50 MILLIGRAM, PM (QUETIAPINE IR; AT NIGHT)
  29. ROSUVASTATIN [Concomitant]
     Active Substance: ROSUVASTATIN
  30. ROSUVASTATIN [Concomitant]
     Active Substance: ROSUVASTATIN
     Route: 065
  31. ROSUVASTATIN [Concomitant]
     Active Substance: ROSUVASTATIN
     Route: 065
  32. ROSUVASTATIN [Concomitant]
     Active Substance: ROSUVASTATIN
  33. METFORMIN [Concomitant]
     Active Substance: METFORMIN HYDROCHLORIDE
  34. METFORMIN [Concomitant]
     Active Substance: METFORMIN HYDROCHLORIDE
     Route: 065
  35. METFORMIN [Concomitant]
     Active Substance: METFORMIN HYDROCHLORIDE
     Route: 065
  36. METFORMIN [Concomitant]
     Active Substance: METFORMIN HYDROCHLORIDE
  37. LINAGLIPTIN [Concomitant]
     Active Substance: LINAGLIPTIN
  38. LINAGLIPTIN [Concomitant]
     Active Substance: LINAGLIPTIN
     Route: 065
  39. LINAGLIPTIN [Concomitant]
     Active Substance: LINAGLIPTIN
     Route: 065
  40. LINAGLIPTIN [Concomitant]
     Active Substance: LINAGLIPTIN
  41. ESOMEPRAZOLE [Concomitant]
     Active Substance: ESOMEPRAZOLE
  42. ESOMEPRAZOLE [Concomitant]
     Active Substance: ESOMEPRAZOLE
     Route: 065
  43. ESOMEPRAZOLE [Concomitant]
     Active Substance: ESOMEPRAZOLE
     Route: 065
  44. ESOMEPRAZOLE [Concomitant]
     Active Substance: ESOMEPRAZOLE
  45. DESMOPRESSIN [Concomitant]
     Active Substance: DESMOPRESSIN
  46. DESMOPRESSIN [Concomitant]
     Active Substance: DESMOPRESSIN
     Route: 065
  47. DESMOPRESSIN [Concomitant]
     Active Substance: DESMOPRESSIN
     Route: 065
  48. DESMOPRESSIN [Concomitant]
     Active Substance: DESMOPRESSIN
  49. SILDENAFIL [Concomitant]
     Active Substance: SILDENAFIL
  50. SILDENAFIL [Concomitant]
     Active Substance: SILDENAFIL
     Route: 065
  51. SILDENAFIL [Concomitant]
     Active Substance: SILDENAFIL
     Route: 065
  52. SILDENAFIL [Concomitant]
     Active Substance: SILDENAFIL

REACTIONS (8)
  - Overdose [Recovering/Resolving]
  - Blood creatine phosphokinase increased [Recovering/Resolving]
  - Troponin T increased [Not Recovered/Not Resolved]
  - Blood thyroid stimulating hormone increased [Unknown]
  - Blood cholesterol increased [Recovered/Resolved]
  - Blood triglycerides increased [Recovered/Resolved]
  - Low density lipoprotein increased [Recovered/Resolved]
  - Non-high-density lipoprotein cholesterol increased [Recovered/Resolved]

NARRATIVE: CASE EVENT DATE: 20240610
